FAERS Safety Report 18853352 (Version 1)
Quarter: 2021Q1

REPORT INFORMATION
  Report Type: Spontaneous
  Country: US (occurrence: US)
  Receive Date: 20210205
  Receipt Date: 20210205
  Transmission Date: 20210420
  Serious: No
  Sender: FDA-Public Use
  Company Number: US-AMNEAL PHARMACEUTICALS-2020-AMRX-01331

PATIENT
  Age: 60 Year
  Sex: Female
  Weight: 69 kg

DRUGS (1)
  1. NAPROXEN. [Suspect]
     Active Substance: NAPROXEN
     Indication: PAIN IN EXTREMITY
     Dosage: 1 TABLETS, EVERY 12HR AS NEEDED
     Route: 048
     Dates: start: 20200420

REACTIONS (2)
  - Vitreous floaters [Unknown]
  - Ocular hyperaemia [Recovering/Resolving]

NARRATIVE: CASE EVENT DATE: 20200505
